FAERS Safety Report 8701931 (Version 2)
Quarter: 2013Q1

REPORT INFORMATION
  Report Type: Report from Study
  Country: US (occurrence: US)
  Receive Date: 20120803
  Receipt Date: 20130115
  Transmission Date: 20140127
  Serious: Yes (Death, Hospitalization)
  Sender: FDA-Public Use
  Company Number: US-SANOFI-AVENTIS-2012SA054523

PATIENT
  Age: 77 Year
  Sex: Male
  Weight: 73 kg

DRUGS (16)
  1. TAXOTERE [Suspect]
     Indication: NON-SMALL CELL LUNG CANCER STAGE IV
     Dosage: EVERY 3 WEEKS, DAY 1 OF 21 DAY CYCLE
     Route: 041
     Dates: start: 20120607, end: 20120607
  2. TAXOTERE [Suspect]
     Indication: NON-SMALL CELL LUNG CANCER STAGE IV
     Route: 041
     Dates: start: 20120719, end: 20120719
  3. BLINDED THERAPY [Suspect]
     Indication: NON-SMALL CELL LUNG CANCER STAGE IV
     Dosage: EVERY 3 WEEKS, DAY 1 OF 21 DAY CYCLE
     Route: 042
     Dates: start: 20120719, end: 20120719
  4. BLINDED THERAPY [Suspect]
     Indication: NON-SMALL CELL LUNG CANCER STAGE IV
     Dosage: EVERY 3 WEEKS, DAY 1 OF 21 DAY CYCLE
     Route: 042
     Dates: start: 20120607, end: 20120607
  5. PANTOPRAZOLE [Concomitant]
     Indication: GASTROOESOPHAGEAL REFLUX DISEASE
     Dates: start: 20120607
  6. AMLODIPINE [Concomitant]
     Indication: BLOOD PRESSURE
     Dates: start: 20120607
  7. LEVOTHYROXINE [Concomitant]
     Indication: HYPOTHYROIDISM
     Dates: start: 20120607
  8. PRO-AIR [Concomitant]
     Indication: CHRONIC OBSTRUCTIVE PULMONARY DISEASE
     Dates: start: 20120607
  9. SPIRIVA [Concomitant]
     Indication: CHRONIC OBSTRUCTIVE PULMONARY DISEASE
     Dates: start: 20120607
  10. ADVAIR [Concomitant]
     Indication: CHRONIC OBSTRUCTIVE PULMONARY DISEASE
     Dates: start: 20120607
  11. SINGULAIR [Concomitant]
     Indication: CHRONIC OBSTRUCTIVE PULMONARY DISEASE
     Dates: start: 20120614
  12. VICODIN [Concomitant]
     Indication: PAIN MANAGEMENT
     Dates: start: 20120607
  13. LASIX [Concomitant]
     Indication: HYPERTENSION
     Dates: start: 20120705
  14. PREDNISONE [Concomitant]
     Indication: CHRONIC OBSTRUCTIVE PULMONARY DISEASE
     Dates: start: 20120705
  15. DEXAMETHASONE [Concomitant]
     Indication: NAUSEA
     Dates: start: 20120531
  16. DIPHENHYDRAMINE [Concomitant]
     Indication: PREMEDICATION

REACTIONS (3)
  - Pulmonary haemorrhage [Fatal]
  - Rash [Unknown]
  - Fatigue [Unknown]
